FAERS Safety Report 19502573 (Version 1)
Quarter: 2021Q3

REPORT INFORMATION
  Report Type: Spontaneous
  Country: CA (occurrence: CA)
  Receive Date: 20210707
  Receipt Date: 20210707
  Transmission Date: 20211014
  Serious: Yes (Hospitalization)
  Sender: FDA-Public Use
  Company Number: CA-PFIZER INC-2021774408

PATIENT
  Sex: Female

DRUGS (2)
  1. GRANISETRON [Suspect]
     Active Substance: GRANISETRON
     Indication: CHEMOTHERAPY
     Dosage: UNK
     Route: 065
  2. FILGRASTIM [Suspect]
     Active Substance: FILGRASTIM
     Indication: SARCOMA
     Dosage: UNK
     Route: 065

REACTIONS (6)
  - White blood cell count increased [Unknown]
  - Off label use [Unknown]
  - Haemoglobin decreased [Unknown]
  - Pyrexia [Unknown]
  - Blood potassium decreased [Unknown]
  - Infection [Unknown]
